FAERS Safety Report 7649798-X (Version None)
Quarter: 2011Q3

REPORT INFORMATION
  Report Type: 
  Country: None (occurrence: None)
  Receive Date: 20110727
  Receipt Date: 20110712
  Transmission Date: 20111222
  Serious: Yes (Hospitalization, Other)
  Sender: FDA-Public Use
  Company Number: 20110445

PATIENT
  Age: 38 Year
  Sex: Female

DRUGS (6)
  1. VENOFER [Suspect]
     Indication: IRON DEFICIENCY ANAEMIA
     Dosage: 2-3 TIMES WEEK INTRAVENOUS DRIP
     Route: 041
     Dates: start: 20110228, end: 20110607
  2. VENOFER [Suspect]
     Indication: POLYCYTHAEMIA
     Dosage: 2-3 TIMES WEEK INTRAVENOUS DRIP
     Route: 041
     Dates: start: 20110228, end: 20110607
  3. DIGOXIN [Concomitant]
  4. TRACLEER [Concomitant]
  5. ALDACTONE [Concomitant]
  6. COUMADIN [Concomitant]

REACTIONS (5)
  - CHEST DISCOMFORT [None]
  - INFUSION RELATED REACTION [None]
  - DIZZINESS [None]
  - HYPOAESTHESIA [None]
  - HALLUCINATION, VISUAL [None]
